FAERS Safety Report 8066895-8 (Version None)
Quarter: 2012Q1

REPORT INFORMATION
  Report Type: 
  Country: None (occurrence: None)
  Receive Date: 20120124
  Receipt Date: 20120101
  Transmission Date: 20120608
  Serious: Yes (Hospitalization)
  Sender: FDA-Public Use
  Company Number: PHHY2012ES005449

PATIENT
  Age: 61 Year
  Sex: Male

DRUGS (1)
  1. METFORMIN HYDROCHLORIDE [Suspect]
     Indication: TYPE 2 DIABETES MELLITUS
     Dosage: 1700 MG, UNK

REACTIONS (5)
  - MALAISE [None]
  - NAUSEA [None]
  - JAUNDICE CHOLESTATIC [None]
  - ACCIDENTAL EXPOSURE [None]
  - ABDOMINAL DISCOMFORT [None]
